FAERS Safety Report 18054111 (Version 1)
Quarter: 2020Q3

REPORT INFORMATION
  Report Type: Spontaneous
  Country: SK (occurrence: SK)
  Receive Date: 20200722
  Receipt Date: 20200722
  Transmission Date: 20201103
  Serious: Yes (Other)
  Sender: FDA-Public Use
  Company Number: NVSC2020SK205579

PATIENT
  Age: 22 Month
  Sex: Female

DRUGS (1)
  1. CEFTRIAXONE. [Suspect]
     Active Substance: CEFTRIAXONE
     Indication: PRODUCT USED FOR UNKNOWN INDICATION
     Dosage: DOSE OF 55 MG/KG OF THE BODYS WEIGHT, ONCE 750 MG INTO 20 ML PHYSIOLOGICAL FLUID INTRAVENOUS INFUSIO
     Route: 042

REACTIONS (1)
  - Cholelithiasis [Recovered/Resolved]
